FAERS Safety Report 5981054 (Version 2)
Quarter: 2016Q1

REPORT INFORMATION
  Report Type: Spontaneous
  Country: AU (occurrence: AU)
  Receive Date: 20060209
  Receipt Date: 20160208
  Transmission Date: 20160526
  Serious: Yes (Hospitalization, Other)
  Sender: FDA-Public Use
  Company Number: AU-BRISTOL-MYERS SQUIBB COMPANY-13271457

PATIENT
  Age: 30 Year
  Sex: Female
  Weight: 93 kg

DRUGS (4)
  1. LITHIUM. [Concomitant]
     Active Substance: LITHIUM
     Indication: MAJOR DEPRESSION
     Dosage: UNK
     Route: 065
  2. SEROTONIN REUPTAKE INHIBITORS [Concomitant]
     Indication: MAJOR DEPRESSION
     Dosage: UNK
     Route: 065
  3. METFORMIN HYDROCHLORIDE. [Suspect]
     Active Substance: METFORMIN HYDROCHLORIDE
     Indication: OVULATION INDUCTION
     Dosage: 500 MG, TID
     Route: 048
  4. CLOMIPHENE [Suspect]
     Active Substance: CLOMIPHENE
     Indication: OVULATION INDUCTION
     Dosage: 50 MG, QD
     Route: 065

REACTIONS (6)
  - Pregnancy [Recovered/Resolved]
  - Caesarean section [Unknown]
  - Multiple pregnancy [Unknown]
  - Foetal death [Unknown]
  - Premature delivery [Unknown]
  - Pre-eclampsia [Unknown]
